FAERS Safety Report 7345682-X (Version None)
Quarter: 2011Q1

REPORT INFORMATION
  Report Type: 
  Country: None (occurrence: None)
  Receive Date: 20110310
  Receipt Date: 20110303
  Transmission Date: 20110831
  Serious: Yes (Hospitalization)
  Sender: FDA-Public Use
  Company Number: B0704375A

PATIENT
  Sex: Male
  Weight: 57 kg

DRUGS (12)
  1. UNKNOWN MEDICATION [Concomitant]
     Dosage: 2IUAX PER DAY
     Route: 042
     Dates: start: 20040515, end: 20040520
  2. MEYLON [Concomitant]
     Dosage: 5IUAX PER DAY
     Route: 042
     Dates: start: 20040520, end: 20040520
  3. NEUTROGIN [Concomitant]
     Dosage: 250MCG PER DAY
     Route: 042
     Dates: start: 20040522, end: 20040531
  4. CYMERIN [Concomitant]
     Indication: STEM CELL TRANSPLANT
     Dosage: 400MG PER DAY
     Route: 042
     Dates: start: 20040515, end: 20040515
  5. KYTRIL [Concomitant]
     Dosage: 2IUAX PER DAY
     Route: 042
     Dates: start: 20040516, end: 20040519
  6. ALKERAN [Suspect]
     Indication: STEM CELL TRANSPLANT
     Dosage: 225MG PER DAY
     Route: 042
     Dates: start: 20040520, end: 20040520
  7. KYTRIL [Concomitant]
     Dosage: 1IUAX PER DAY
     Route: 042
     Dates: start: 20040515, end: 20040515
  8. CYLOCIDE [Suspect]
     Indication: STEM CELL TRANSPLANT
     Dosage: 640MG PER DAY
     Route: 042
     Dates: start: 20040516, end: 20040519
  9. SOLU-CORTEF [Concomitant]
     Dosage: 2IUAX PER DAY
     Route: 042
     Dates: start: 20040520, end: 20040520
  10. VEPESID [Suspect]
     Indication: STEM CELL TRANSPLANT
     Dosage: 320MG PER DAY
     Route: 042
     Dates: start: 20040516, end: 20040519
  11. KYTRIL [Concomitant]
     Dosage: 1IUAX PER DAY
     Route: 042
     Dates: start: 20040520, end: 20040521
  12. GLUCOSE [Concomitant]
     Dosage: 5IUAX PER DAY
     Route: 042
     Dates: start: 20040520, end: 20040520

REACTIONS (1)
  - MUCOUS MEMBRANE DISORDER [None]
